FAERS Safety Report 17895323 (Version 1)
Quarter: 2020Q2

REPORT INFORMATION
  Report Type: Spontaneous
  Country: CA (occurrence: CA)
  Receive Date: 20200615
  Receipt Date: 20200615
  Transmission Date: 20200714
  Serious: Yes (Hospitalization)
  Sender: FDA-Public Use
  Company Number: CA-BAUSCH-BL-2020-017067

PATIENT
  Age: 63 Year
  Sex: Female
  Weight: 58.07 kg

DRUGS (3)
  1. SOLIRIS [Suspect]
     Active Substance: ECULIZUMAB
     Dosage: 10MG/ML
     Route: 042
  2. ATIVAN [Suspect]
     Active Substance: LORAZEPAM
     Indication: PRODUCT USED FOR UNKNOWN INDICATION
     Route: 065
  3. SOLIRIS [Suspect]
     Active Substance: ECULIZUMAB
     Indication: PAROXYSMAL NOCTURNAL HAEMOGLOBINURIA
     Dosage: 10MG/ML
     Route: 042

REACTIONS (7)
  - Chest pain [Not Recovered/Not Resolved]
  - Tooth abscess [Not Recovered/Not Resolved]
  - Road traffic accident [Not Recovered/Not Resolved]
  - Tooth infection [Not Recovered/Not Resolved]
  - Endodontic procedure [Not Recovered/Not Resolved]
  - Hyperaesthesia teeth [Not Recovered/Not Resolved]
  - Haemoglobin decreased [Not Recovered/Not Resolved]
